FAERS Safety Report 19357246 (Version 2)
Quarter: 2021Q2

REPORT INFORMATION
  Report Type: Other
  Country: US (occurrence: US)
  Receive Date: 20210602
  Receipt Date: 20210619
  Transmission Date: 20210717
  Serious: Yes (Other)
  Sender: FDA-Public Use
  Company Number: US-ROCHE-2838504

PATIENT
  Sex: Male
  Weight: 90.3 kg

DRUGS (3)
  1. CELLCEPT [Suspect]
     Active Substance: MYCOPHENOLATE MOFETIL\MYCOPHENOLATE MOFETIL HYDROCHLORIDE
     Indication: PRODUCT USED FOR UNKNOWN INDICATION
     Route: 048
     Dates: end: 20210406
  2. VALCYTE [Suspect]
     Active Substance: VALGANCICLOVIR HYDROCHLORIDE
     Indication: CYTOMEGALOVIRUS INFECTION
  3. VALCYTE [Suspect]
     Active Substance: VALGANCICLOVIR HYDROCHLORIDE
     Indication: BONE MARROW TRANSPLANT
     Dosage: RECEIVED FROM 3/19?26
     Route: 048
     Dates: end: 20210326

REACTIONS (10)
  - Obesity [Unknown]
  - Hypogammaglobulinaemia [Unknown]
  - Hypomagnesaemia [Unknown]
  - Cytopenia [Unknown]
  - Hypokalaemia [Unknown]
  - Chronic lymphocytic inflammation with pontine perivascular enhancement responsive to steroids [Unknown]
  - Diabetes mellitus [Unknown]
  - Off label use [Unknown]
  - Back pain [Unknown]
  - Rash [Unknown]
